FAERS Safety Report 5407189-6 (Version None)
Quarter: 2007Q3

REPORT INFORMATION
  Report Type: 
  Country: None (occurrence: None)
  Receive Date: 20070807
  Receipt Date: 20070801
  Transmission Date: 20080115
  Serious: Yes (Death)
  Sender: FDA-Public Use
  Company Number: US-BAXTER-2007BH006765

PATIENT
  Sex: Female

DRUGS (2)
  1. ATIVAN [Suspect]
     Indication: PSYCHOTIC DISORDER
     Route: 030
     Dates: start: 20070601, end: 20070601
  2. OLANZAPINE [Suspect]
     Indication: PSYCHOTIC DISORDER
     Route: 030
     Dates: start: 20070601, end: 20070601

REACTIONS (2)
  - CARDIAC ARREST [None]
  - DEATH [None]
